FAERS Safety Report 16156599 (Version 1)
Quarter: 2019Q2

REPORT INFORMATION
  Report Type: Spontaneous
  Country: ES (occurrence: ES)
  Receive Date: 20190404
  Receipt Date: 20190404
  Transmission Date: 20190711
  Serious: Yes (Hospitalization, Other)
  Sender: FDA-Public Use
  Company Number: ES-ZYDUS-035456

PATIENT
  Age: 39 Year
  Sex: Female

DRUGS (1)
  1. SERTRALINE [Suspect]
     Active Substance: SERTRALINE HYDROCHLORIDE
     Indication: MAJOR DEPRESSION
     Route: 065

REACTIONS (8)
  - Dyslipidaemia [Recovered/Resolved]
  - Plasmapheresis [None]
  - Jaundice [Recovered/Resolved]
  - Cholestasis [Recovered/Resolved]
  - Vanishing bile duct syndrome [Recovered/Resolved]
  - Hepatic steatosis [Recovered/Resolved]
  - Liver function test abnormal [Recovered/Resolved]
  - Condition aggravated [Recovered/Resolved]
